FAERS Safety Report 19385530 (Version 1)
Quarter: 2021Q2

REPORT INFORMATION
  Report Type: Spontaneous
  Country: US (occurrence: US)
  Receive Date: 20210605
  Receipt Date: 20210605
  Transmission Date: 20210717
  Serious: Yes (Hospitalization)
  Sender: FDA-Public Use
  Company Number: None

PATIENT
  Age: 56 Year
  Sex: Female
  Weight: 120.6 kg

DRUGS (11)
  1. LANTUS [Concomitant]
     Active Substance: INSULIN GLARGINE
  2. PURPLE [Concomitant]
     Active Substance: ALLANTOIN
  3. BAYER [Concomitant]
     Active Substance: ASPIRIN
  4. LITHOBID [Concomitant]
     Active Substance: LITHIUM CARBONATE
  5. HUMALOG [Concomitant]
     Active Substance: INSULIN LISPRO
  6. BACLOFEN. [Suspect]
     Active Substance: BACLOFEN
     Indication: MUSCLE SPASMS
     Dosage: ?          QUANTITY:1 TABLET(S);?
     Route: 048
     Dates: start: 20210509, end: 20210510
  7. GENERIC FLEXERIL [Concomitant]
     Active Substance: CYCLOBENZAPRINE HYDROCHLORIDE
  8. LEVOTHYROXINE. [Concomitant]
     Active Substance: LEVOTHYROXINE
  9. TYLENOL ARTHRITIS PAIN [Concomitant]
     Active Substance: ACETAMINOPHEN
  10. CYCLOBEZAPINE [Concomitant]
  11. COREG [Concomitant]
     Active Substance: CARVEDILOL

REACTIONS (2)
  - Mania [None]
  - Diabetes mellitus inadequate control [None]

NARRATIVE: CASE EVENT DATE: 20210510
